FAERS Safety Report 15721052 (Version 4)
Quarter: 2019Q1

REPORT INFORMATION
  Report Type: Report from Study
  Country: NL (occurrence: NL)
  Receive Date: 20181214
  Receipt Date: 20190215
  Transmission Date: 20190417
  Serious: Yes (Hospitalization, Other)
  Sender: FDA-Public Use
  Company Number: NL-TEVA-2018-NL-985712

PATIENT
  Age: 71 Year
  Sex: Female

DRUGS (11)
  1. DEXAMETHASONE. [Suspect]
     Active Substance: DEXAMETHASONE
     Indication: ACUTE LYMPHOCYTIC LEUKAEMIA
     Route: 037
     Dates: start: 20170606, end: 20170606
  2. METHOTREXATE. [Suspect]
     Active Substance: METHOTREXATE
     Indication: ACUTE LYMPHOCYTIC LEUKAEMIA
     Route: 037
     Dates: start: 20170706, end: 20170706
  3. CYTARABINE. [Suspect]
     Active Substance: CYTARABINE
     Indication: ACUTE LYMPHOCYTIC LEUKAEMIA
     Route: 065
     Dates: start: 20170622, end: 20170623
  4. DOLOCIN [Concomitant]
     Indication: PRODUCT USED FOR UNKNOWN INDICATION
     Route: 065
  5. PREDNISOLONE. [Suspect]
     Active Substance: PREDNISOLONE
     Route: 065
     Dates: start: 20171030, end: 20171105
  6. VANCOMYCIN [Concomitant]
     Active Substance: VANCOMYCIN
     Indication: STAPHYLOCOCCAL INFECTION
     Route: 065
  7. CLOFARABINE. [Suspect]
     Active Substance: CLOFARABINE
     Indication: ACUTE LYMPHOCYTIC LEUKAEMIA
     Dosage: 48.78 MILLIGRAM DAILY;
     Route: 042
     Dates: start: 20170110, end: 20170114
  8. PEGASPARGASE [Suspect]
     Active Substance: PEGASPARGASE
     Indication: ACUTE LYMPHOCYTIC LEUKAEMIA
     Route: 042
     Dates: start: 20170624, end: 20170624
  9. DALACIN C [CLINDAMYCIN HYDROCHLORIDE] [Concomitant]
     Active Substance: CLINDAMYCIN HYDROCHLORIDE
     Dosage: 1800 MILLIGRAM DAILY;
     Route: 048
  10. 6-MERCAPTOPURINE MONOHYDRATE [Suspect]
     Active Substance: MERCAPTOPURINE
     Route: 065
     Dates: start: 20171030, end: 20171111
  11. METHOTREXATE. [Suspect]
     Active Substance: METHOTREXATE
     Indication: ACUTE LYMPHOCYTIC LEUKAEMIA
     Route: 048
     Dates: start: 20170706, end: 20170706

REACTIONS (3)
  - Staphylococcal bacteraemia [Recovered/Resolved]
  - Febrile neutropenia [Recovered/Resolved]
  - Staphylococcal sepsis [Recovered/Resolved]

NARRATIVE: CASE EVENT DATE: 20170710
